FAERS Safety Report 6179051-5 (Version None)
Quarter: 2009Q2

REPORT INFORMATION
  Report Type: 
  Country: None (occurrence: None)
  Receive Date: 20090505
  Receipt Date: 20090423
  Transmission Date: 20091009
  Serious: Yes (Other)
  Sender: FDA-Public Use
  Company Number: PHHY2009MX15780

PATIENT
  Sex: Female

DRUGS (2)
  1. DIOVAN HCT [Suspect]
     Indication: HYPERTENSION
     Dosage: 80/12.5 MG
     Route: 048
  2. DIOVAN HCT [Suspect]
     Dosage: 80/12.5 HALF TABLET DAILY

REACTIONS (2)
  - EYE HAEMORRHAGE [None]
  - HYPOAESTHESIA [None]
